FAERS Safety Report 8918215 (Version 1)
Quarter: 2012Q4

REPORT INFORMATION
  Report Type: 
  Country: US (occurrence: US)
  Receive Date: 20121120
  Receipt Date: 20121120
  Transmission Date: 20130627
  Serious: No
  Sender: FDA-Public Use
  Company Number: US-ASTRAZENECA-2012SE24692

PATIENT
  Age: 61 Year
  Sex: Female
  Weight: 63.5 kg

DRUGS (6)
  1. NEXIUM [Suspect]
     Indication: GASTROOESOPHAGEAL REFLUX DISEASE
     Route: 048
  2. EFFEXOR [Concomitant]
     Indication: ANTIDEPRESSANT THERAPY
  3. ZYRTEC OTC [Concomitant]
     Indication: MULTIPLE ALLERGIES
  4. KLONOPIN [Concomitant]
     Indication: ANXIETY
  5. TOPAMAX [Concomitant]
     Indication: MIGRAINE
  6. IMITREX [Concomitant]
     Indication: MIGRAINE

REACTIONS (2)
  - Gastritis [Unknown]
  - Intentional drug misuse [Unknown]
